FAERS Safety Report 17543223 (Version 7)
Quarter: 2021Q3

REPORT INFORMATION
  Report Type: Report from Study
  Country: BR (occurrence: BR)
  Receive Date: 20200316
  Receipt Date: 20210822
  Transmission Date: 20211014
  Serious: Yes (Hospitalization)
  Sender: FDA-Public Use
  Company Number: BR-BIOGEN-2018BI00657665

PATIENT
  Age: 40 Year
  Sex: Female
  Weight: 95 kg

DRUGS (14)
  1. DIPYRONE [Suspect]
     Active Substance: DIPYRONE
     Indication: GALLBLADDER DISORDER
     Route: 065
  2. TECFIDERA [Suspect]
     Active Substance: DIMETHYL FUMARATE
     Route: 050
     Dates: start: 2017, end: 201902
  3. PROPRANOLOL HYDROCHLORIDE. [Concomitant]
     Active Substance: PROPRANOLOL HYDROCHLORIDE
     Indication: HYPERTENSION
     Route: 050
     Dates: start: 2012
  4. TECFIDERA [Suspect]
     Active Substance: DIMETHYL FUMARATE
     Route: 048
     Dates: start: 2017, end: 2019
  5. HISTAMIN (DEXCHLORPHENIRAMINE MALEATE) [Concomitant]
     Active Substance: DEXCHLORPHENIRAMINE MALEATE
     Indication: FLUSHING
     Route: 065
  6. DICLIN [Concomitant]
     Indication: PRODUCT USED FOR UNKNOWN INDICATION
     Route: 065
  7. TECFIDERA [Suspect]
     Active Substance: DIMETHYL FUMARATE
     Indication: MULTIPLE SCLEROSIS
     Dosage: MAINTENANCE DOSE
     Route: 050
     Dates: start: 20171214, end: 20200415
  8. TECFIDERA [Suspect]
     Active Substance: DIMETHYL FUMARATE
     Dosage: MAINTENANCE DOSE
     Route: 050
     Dates: start: 20171214, end: 20200415
  9. VITAMIN D [Concomitant]
     Active Substance: VITAMIN D NOS
     Indication: PRODUCT USED FOR UNKNOWN INDICATION
     Route: 050
  10. MORPHINE [Suspect]
     Active Substance: MORPHINE
     Indication: GALLBLADDER DISORDER
     Route: 065
  11. ATENSINE (CLONIDINE HYDROCHLORIDE) [Concomitant]
     Indication: HYPERTENSION
     Route: 065
  12. PROPRANOLOL HYDROCHLORIDE. [Concomitant]
     Active Substance: PROPRANOLOL HYDROCHLORIDE
     Route: 065
  13. PROPANOLOL [Concomitant]
     Active Substance: PROPRANOLOL HYDROCHLORIDE
     Indication: HYPERTENSION
     Route: 065
  14. AAS [Concomitant]
     Active Substance: ASPIRIN
     Indication: FLUSHING
     Route: 065

REACTIONS (21)
  - Dizziness [Not Recovered/Not Resolved]
  - Memory impairment [Not Recovered/Not Resolved]
  - Flushing [Recovered/Resolved]
  - Abdominal pain upper [Recovered/Resolved]
  - Constipation [Not Recovered/Not Resolved]
  - Biliary colic [Recovered/Resolved]
  - Malaise [Not Recovered/Not Resolved]
  - Asthenia [Unknown]
  - Multiple sclerosis [Not Recovered/Not Resolved]
  - Hyperhidrosis [Not Recovered/Not Resolved]
  - Feeling hot [Not Recovered/Not Resolved]
  - Vomiting [Recovered/Resolved]
  - Multiple sclerosis relapse [Not Recovered/Not Resolved]
  - Weight increased [Recovered/Resolved]
  - Treatment failure [Unknown]
  - Fall [Recovered/Resolved]
  - Burning sensation [Not Recovered/Not Resolved]
  - Renal disorder [Recovered/Resolved]
  - Gallbladder disorder [Recovered/Resolved]
  - Eye pruritus [Not Recovered/Not Resolved]
  - Joint dislocation [Recovered/Resolved]

NARRATIVE: CASE EVENT DATE: 2017
